FAERS Safety Report 9254697 (Version 1)
Quarter: 2013Q2

REPORT INFORMATION
  Report Type: Spontaneous
  Country: US (occurrence: None)
  Receive Date: 20130418
  Receipt Date: 20130418
  Transmission Date: 20140414
  Serious: Yes (Other)
  Sender: FDA-Public Use
  Company Number: JPI-P-031069

PATIENT
  Age: 55 Year
  Sex: Female

DRUGS (1)
  1. XYREM [Suspect]
     Indication: INSOMNIA
     Dosage: (2.25GM, 2 IN 1 D), ORAL
     Route: 048
     Dates: start: 20130204

REACTIONS (2)
  - Foot fracture [None]
  - Insomnia [None]
